FAERS Safety Report 7880328-3 (Version None)
Quarter: 2011Q4

REPORT INFORMATION
  Report Type: 
  Country: None (occurrence: None)
  Receive Date: 20111101
  Receipt Date: 20111024
  Transmission Date: 20120403
  Serious: Yes (Other)
  Sender: FDA-Public Use
  Company Number: US-ASTRAZENECA-2011SE55871

PATIENT
  Age: 64 Year
  Sex: Female

DRUGS (3)
  1. NEXIUM [Suspect]
     Route: 048
  2. AMARYL [Concomitant]
  3. GLUCOPHAGE [Concomitant]

REACTIONS (8)
  - CROHN'S DISEASE [None]
  - GASTROOESOPHAGEAL REFLUX DISEASE [None]
  - ANAEMIA [None]
  - DYSPEPSIA [None]
  - ABNORMAL LOSS OF WEIGHT [None]
  - DRUG DOSE OMISSION [None]
  - COLITIS [None]
  - NERVOUS SYSTEM DISORDER [None]
